FAERS Safety Report 17228494 (Version 2)
Quarter: 2020Q1

REPORT INFORMATION
  Report Type: Report from Study
  Country: US (occurrence: US)
  Receive Date: 20200103
  Receipt Date: 20200107
  Transmission Date: 20200409
  Serious: Yes (Other)
  Sender: FDA-Public Use
  Company Number: US-TEVA-2019-US-1161344

PATIENT
  Age: 37 Year
  Sex: Male

DRUGS (1)
  1. COPAXONE [Suspect]
     Active Substance: GLATIRAMER ACETATE
     Dosage: FORM STRENGTH: UNKNOWN

REACTIONS (22)
  - Speech disorder [Unknown]
  - Swelling [Unknown]
  - Feeling hot [Unknown]
  - Chest pain [Unknown]
  - Dyspnoea [Unknown]
  - Gait inability [Unknown]
  - Swelling face [Unknown]
  - Erythema [Unknown]
  - Vomiting [Unknown]
  - Burning sensation [Unknown]
  - Blood pressure decreased [Unknown]
  - Hyperhidrosis [Unknown]
  - Visual impairment [Unknown]
  - Throat tightness [Unknown]
  - Dizziness [Unknown]
  - Diarrhoea [Unknown]
  - Dysstasia [Unknown]
  - Hypersensitivity [Recovering/Resolving]
  - Immediate post-injection reaction [Unknown]
  - Presyncope [Unknown]
  - Asthenia [Unknown]
  - Fatigue [Unknown]

NARRATIVE: CASE EVENT DATE: 20191223
